FAERS Safety Report 8337890-6 (Version None)
Quarter: 2012Q1

REPORT INFORMATION
  Report Type: 
  Country: None (occurrence: None)
  Receive Date: 20120329
  Receipt Date: 20101005
  Transmission Date: 20120608
  Serious: Yes (Other)
  Sender: FDA-Public Use
  Company Number: PHHY2010US66554

PATIENT
  Age: 80 Year
  Sex: Female

DRUGS (1)
  1. EXELON [Suspect]
     Dosage: 4.6MG, FOR TWO WEEKS, TRANSDERMAL
     Route: 062

REACTIONS (2)
  - CONFUSIONAL STATE [None]
  - HALLUCINATION [None]
